FAERS Safety Report 17958816 (Version 1)
Quarter: 2020Q2

REPORT INFORMATION
  Report Type: Spontaneous
  Country: ES (occurrence: ES)
  Receive Date: 20200629
  Receipt Date: 20200629
  Transmission Date: 20200714
  Serious: Yes (Death)
  Sender: FDA-Public Use
  Company Number: NVSC2020ES182008

PATIENT
  Age: 88 Year
  Sex: Male
  Weight: 69 kg

DRUGS (9)
  1. DISTRANEURINE [Concomitant]
     Active Substance: CLOMETHIAZOLE
     Indication: DEMENTIA ALZHEIMER^S TYPE
     Dosage: 1 DF, Q8H (1 CAPSULA CADA 8 HORAS 30 CAPSULAS)
     Route: 065
     Dates: start: 20180315
  2. RIVOTRIL [Concomitant]
     Active Substance: CLONAZEPAM
     Indication: DEMENTIA ALZHEIMER^S TYPE
     Dosage: 1.5 MG, QD (3 COMPRIMIDOS CADA DIA 0.5 MG 60 COMPRIMIDOS)
     Route: 065
     Dates: start: 20180711
  3. DEPRAX [Concomitant]
     Indication: DEMENTIA ALZHEIMER^S TYPE
     Dosage: 100 MG, QD (1 COMPRIMIDO CADA DIA  100 MG 60 COMPRIMIDOS RECUBIERTOS CON PELICULA)
     Route: 065
     Dates: start: 20180315
  4. LISINOPRIL + HIDROCLOROTIAZIDA [Concomitant]
     Active Substance: HYDROCHLOROTHIAZIDE\LISINOPRIL
     Indication: HYPERTENSION
     Dosage: 1 DF, QD (1 COMPRIMIDO CADA DIA (20/12,5) MG/ 28 COMPRIMIDOS)
     Route: 065
     Dates: start: 20130520
  5. METFORMIN [Suspect]
     Active Substance: METFORMIN HYDROCHLORIDE
     Indication: TYPE 2 DIABETES MELLITUS
     Dosage: 850 MG, Q12H (1 COMPRIMIDO A MEDIODIA, 1 COMPRIMIDO EN LA CENA 850 MG / 50 COMPRIMIDOS)
     Route: 065
     Dates: start: 20101019
  6. DIAZEPAM. [Concomitant]
     Active Substance: DIAZEPAM
     Indication: AGITATION
     Dosage: 1 DF, PRN (1 ENVASE CADA 90 DAA/S 10 MG / 25 COMPRIMIDOS)
     Route: 065
     Dates: start: 20190226
  7. QUETIAPINA [Concomitant]
     Active Substance: QUETIAPINE
     Indication: DEMENTIA ALZHEIMER^S TYPE
     Dosage: 100 MG, QD (1 COMPRIMIDO CADA DIA 100 MG / 60 COMPRIMIDOS RECUBIERTO)
     Route: 065
     Dates: start: 20180315
  8. ABASAGLAR [Concomitant]
     Active Substance: INSULIN GLARGINE
     Indication: TYPE 2 DIABETES MELLITUS
     Dosage: 10 IU, QD (10UI EN EL DESAYUNO 100 UNIDADES/ML 5 PLUMAS PRECARGADAS SOLUCION INYECT)
     Route: 065
     Dates: start: 20190314
  9. MEMANTINA [Concomitant]
     Active Substance: MEMANTINE HYDROCHLORIDE
     Indication: DEMENTIA ALZHEIMER^S TYPE
     Dosage: 20 MG, QD (1 COMPRIMIDO CADA DIA 20 MG / 56 COMPRIMIDOS RECUBIERTO)
     Route: 065
     Dates: start: 20180315

REACTIONS (1)
  - Lactic acidosis [Fatal]

NARRATIVE: CASE EVENT DATE: 20190417
